FAERS Safety Report 6142266-6 (Version None)
Quarter: 2009Q2

REPORT INFORMATION
  Report Type: 
  Country: None (occurrence: None)
  Receive Date: 20090401
  Receipt Date: 20090401
  Transmission Date: 20091009
  Serious: Yes (Death, Life-Threatening, Hospitalization)
  Sender: FDA-Public Use
  Company Number: None

PATIENT
  Age: 73 Year
  Sex: Female
  Weight: 41 kg

DRUGS (9)
  1. VANCOMYCIN [Suspect]
     Dosage: INTRAVENOUS
     Route: 042
  2. REMICADE [Suspect]
     Indication: RHEUMATOID ARTHRITIS
     Dosage: 150 MG ONCE EVERY 8 WEEKS, INTRAVENOUS
     Route: 042
  3. TACROLIMUS [Suspect]
     Indication: DRUG USE FOR UNKNOWN INDICATION
     Dosage: 3 MG ONCE DAILY
  4. ATENOLOL [Concomitant]
  5. CYANOCOBALAMIN [Concomitant]
  6. ARTIFICIAL TEARS [Concomitant]
  7. DIDRONEL [Concomitant]
  8. FOLIC ACID [Concomitant]
  9. PREDNISOLONE [Concomitant]

REACTIONS (11)
  - BURSITIS INFECTIVE [None]
  - CEREBRAL INFARCTION [None]
  - CHEST PAIN [None]
  - DEHYDRATION [None]
  - DISEASE PROGRESSION [None]
  - EYE OPERATION [None]
  - LOSS OF CONSCIOUSNESS [None]
  - PULMONARY OEDEMA [None]
  - PYREXIA [None]
  - RENAL FAILURE ACUTE [None]
  - RHEUMATOID ARTHRITIS [None]
